FAERS Safety Report 10951979 (Version 1)
Quarter: 2015Q1

REPORT INFORMATION
  Report Type: Spontaneous
  Country: US (occurrence: US)
  Receive Date: 20150325
  Receipt Date: 20150325
  Transmission Date: 20150721
  Serious: Yes (Death)
  Sender: FDA-Public Use
  Company Number: US-CIPLA LTD.-2015US02240

PATIENT

DRUGS (7)
  1. ZOLPIDEM TARTARATE [Suspect]
     Active Substance: ZOLPIDEM TARTRATE
  2. GABAPENTIN. [Suspect]
     Active Substance: GABAPENTIN
  3. HYDROCODONE [Suspect]
     Active Substance: HYDROCODONE
  4. ACETAMINOPHEN. [Suspect]
     Active Substance: ACETAMINOPHEN
  5. ESTROGENS, CONJUGATED [Suspect]
     Active Substance: ESTROGENS, CONJUGATED
  6. PHENYTOIN. [Suspect]
     Active Substance: PHENYTOIN
  7. CARBAMAZEPINE. [Suspect]
     Active Substance: CARBAMAZEPINE

REACTIONS (1)
  - Completed suicide [Fatal]
